FAERS Safety Report 10087178 (Version 2)
Quarter: 2014Q2

REPORT INFORMATION
  Report Type: Spontaneous
  Country: US (occurrence: US)
  Receive Date: 20140418
  Receipt Date: 20140418
  Transmission Date: 20141212
  Serious: Yes (Hospitalization)
  Sender: FDA-Public Use
  Company Number: US-BAXTER-2014BAX018089

PATIENT
  Age: 71 Year
  Sex: Male

DRUGS (2)
  1. DIANEAL LOW CALCIUM (ULTRABAG) [Suspect]
     Indication: PERITONEAL DIALYSIS
     Route: 033
     Dates: start: 201403, end: 20140331
  2. BACTRIM [Concomitant]
     Indication: LUNG INFILTRATION
     Route: 048
     Dates: start: 20140328

REACTIONS (5)
  - Lung infiltration [Recovering/Resolving]
  - Peritonitis bacterial [Not Recovered/Not Resolved]
  - Catheter site infection [Unknown]
  - Device related infection [Unknown]
  - Peritoneal dialysis complication [Unknown]
